FAERS Safety Report 19839299 (Version 1)
Quarter: 2021Q3

REPORT INFORMATION
  Report Type: Spontaneous
  Country: US (occurrence: US)
  Receive Date: 20210915
  Receipt Date: 20210915
  Transmission Date: 20211014
  Serious: Yes (Life-Threatening, Hospitalization)
  Sender: FDA-Public Use
  Company Number: None

PATIENT
  Age: 62 Year
  Sex: Female

DRUGS (6)
  1. VILAZODONE [Concomitant]
     Active Substance: VILAZODONE
  2. SCOPOLAMINE [Concomitant]
     Active Substance: SCOPOLAMINE
  3. BREXPIPRAZOLE [Suspect]
     Active Substance: BREXPIPRAZOLE
  4. LAMOTRIGINE. [Concomitant]
     Active Substance: LAMOTRIGINE
  5. BENZTROPINE. [Suspect]
     Active Substance: BENZTROPINE
  6. FLUCONAZOLE. [Concomitant]
     Active Substance: FLUCONAZOLE

REACTIONS (3)
  - Disorientation [None]
  - Anaemia [None]
  - Tardive dyskinesia [None]

NARRATIVE: CASE EVENT DATE: 20210609
